FAERS Safety Report 23878283 (Version 1)
Quarter: 2024Q2

REPORT INFORMATION
  Report Type: Spontaneous
  Country: US (occurrence: US)
  Receive Date: 20240521
  Receipt Date: 20240521
  Transmission Date: 20240716
  Serious: Yes (Other)
  Sender: FDA-Public Use
  Company Number: US-AUROBINDO-AUR-APL-2024-023509

PATIENT
  Age: 68 Year
  Sex: Female

DRUGS (2)
  1. METHOTREXATE [Suspect]
     Active Substance: METHOTREXATE
     Indication: Pachymeningitis
     Dosage: 15 MILLIGRAM, EVERY WEEK
     Route: 065
     Dates: end: 201503
  2. PREDNISONE [Suspect]
     Active Substance: PREDNISONE
     Indication: Pachymeningitis
     Dosage: 60 MILLIGRAM, DAILY
     Route: 048

REACTIONS (4)
  - Optic neuropathy [Unknown]
  - Pupillary reflex impaired [Unknown]
  - Drug ineffective [Unknown]
  - Rebound effect [Unknown]

NARRATIVE: CASE EVENT DATE: 20141001
